FAERS Safety Report 21154819 (Version 6)
Quarter: 2022Q4

REPORT INFORMATION
  Report Type: Spontaneous
  Country: US (occurrence: US)
  Receive Date: 20220801
  Receipt Date: 20221128
  Transmission Date: 20230113
  Serious: No
  Sender: FDA-Public Use
  Company Number: US-PFIZER INC-202200978697

PATIENT
  Age: 15 Year
  Sex: Male
  Weight: 61.224 kg

DRUGS (2)
  1. GENOTROPIN [Suspect]
     Active Substance: SOMATROPIN
     Indication: Growth hormone deficiency
     Dosage: 3.4 MG, DAILY (EVERY NIGHT)
  2. GENOTROPIN [Suspect]
     Active Substance: SOMATROPIN
     Dosage: 2.4 MG, DAILY (NIGHTLY)
     Route: 058
     Dates: start: 2008

REACTIONS (6)
  - Drug dose omission by device [Unknown]
  - Device information output issue [Unknown]
  - Device operational issue [Unknown]
  - Device leakage [Unknown]
  - Product contamination [Unknown]
  - Device malfunction [Unknown]

NARRATIVE: CASE EVENT DATE: 20220101
